FAERS Safety Report 17534557 (Version 1)
Quarter: 2020Q1

REPORT INFORMATION
  Report Type: Spontaneous
  Country: US (occurrence: US)
  Receive Date: 20200312
  Receipt Date: 20200312
  Transmission Date: 20200409
  Serious: Yes (Life-Threatening, Hospitalization, Other)
  Sender: FDA-Public Use
  Company Number: US-ELI_LILLY_AND_COMPANY-US202003003987

PATIENT
  Age: 14 Year
  Sex: Female
  Weight: 99 kg

DRUGS (7)
  1. WARFARIN [Suspect]
     Active Substance: WARFARIN
     Indication: PULMONARY HYPERTENSION
     Dosage: UNK UNK, UNKNOWN
     Route: 065
     Dates: start: 20181101, end: 20190416
  2. TADALAFIL. [Suspect]
     Active Substance: TADALAFIL
     Indication: PULMONARY HYPERTENSION
     Dosage: 40 UG, DAILY
     Dates: start: 20181102
  3. LASIX [Concomitant]
     Active Substance: FUROSEMIDE
     Indication: PRODUCT USED FOR UNKNOWN INDICATION
  4. AMBRISENTAN [Suspect]
     Active Substance: AMBRISENTAN
     Indication: PULMONARY HYPERTENSION
     Dosage: 10 UG, UNKNOWN
     Route: 065
     Dates: start: 20181023, end: 20190331
  5. REMODULIN [Suspect]
     Active Substance: TREPROSTINIL
     Indication: PULMONARY ARTERIAL HYPERTENSION
     Dosage: 0.08 UG/KG, UNKNOWN
     Route: 058
     Dates: start: 20181116, end: 20200114
  6. REMODULIN [Suspect]
     Active Substance: TREPROSTINIL
     Dosage: 0.102 UG/KG, UNKNOWN
     Route: 058
     Dates: start: 20190124
  7. PRILOSEC [Concomitant]
     Active Substance: OMEPRAZOLE MAGNESIUM
     Indication: PRODUCT USED FOR UNKNOWN INDICATION

REACTIONS (7)
  - Ischaemic hepatitis [Recovered/Resolved]
  - Hepatitis [Unknown]
  - Drug-induced liver injury [Unknown]
  - Acute on chronic liver failure [Not Recovered/Not Resolved]
  - Hypotension [Recovered/Resolved]
  - Flushing [Unknown]
  - Mobility decreased [Recovered/Resolved]

NARRATIVE: CASE EVENT DATE: 201812
